FAERS Safety Report 4816384-6 (Version None)
Quarter: 2005Q4

REPORT INFORMATION
  Report Type: 
  Country: None (occurrence: None)
  Receive Date: 20051028
  Receipt Date: 20051018
  Transmission Date: 20060501
  Serious: Yes (Hospitalization)
  Sender: FDA-Public Use
  Company Number: 2005143903

PATIENT
  Age: 47 Year
  Sex: Female

DRUGS (4)
  1. AZULFIDINE EN-TABS [Suspect]
     Indication: RHEUMATOID ARTHRITIS
     Dosage: 1000 MG (500 MG, BID),ORAL
     Route: 048
     Dates: start: 20050618, end: 20050702
  2. METHOTREXATE [Concomitant]
  3. LOXOPROFEN SODIUM (LOXOPROFEN SODIUM) [Concomitant]
  4. DEXAMETHASONE [Concomitant]

REACTIONS (4)
  - BRONCHITIS [None]
  - DRUG ERUPTION [None]
  - GENERALISED ERYTHEMA [None]
  - PYREXIA [None]
